FAERS Safety Report 13997607 (Version 1)
Quarter: 2017Q3

REPORT INFORMATION
  Report Type: Not Available
  Country: None (occurrence: US)
  Receive Date: 20170921
  Receipt Date: 20170921
  Transmission Date: 20171128
  Serious: No
  Sender: FDA-Public Use
  Company Number: US-AKORN-67402

PATIENT
  Sex: Female

DRUGS (1)
  1. ZIOPTAN [Suspect]
     Active Substance: TAFLUPROST

REACTIONS (9)
  - Cough [None]
  - Glossodynia [None]
  - Pain [None]
  - Dysphagia [None]
  - Pyrexia [None]
  - Conjunctival hyperaemia [None]
  - Lymphadenopathy [None]
  - Oropharyngeal pain [None]
  - Nasopharyngitis [None]
